FAERS Safety Report 21104823 (Version 3)
Quarter: 2022Q4

REPORT INFORMATION
  Report Type: Spontaneous
  Country: US (occurrence: US)
  Receive Date: 20220720
  Receipt Date: 20221026
  Transmission Date: 20230113
  Serious: No
  Sender: FDA-Public Use
  Company Number: US-PFIZER INC-2021575047

PATIENT
  Age: 66 Year
  Sex: Female

DRUGS (1)
  1. GENOTROPIN [Suspect]
     Active Substance: SOMATROPIN
     Dosage: 0.6 MG, DAILY
     Dates: start: 20170619

REACTIONS (5)
  - Device information output issue [Unknown]
  - Device physical property issue [Unknown]
  - Device use error [Unknown]
  - Drug dose omission by device [Unknown]
  - Circumstance or information capable of leading to medication error [Unknown]
